FAERS Safety Report 13985843 (Version 6)
Quarter: 2017Q4

REPORT INFORMATION
  Report Type: Spontaneous
  Country: US (occurrence: US)
  Receive Date: 20170919
  Receipt Date: 20171227
  Transmission Date: 20180321
  Serious: Yes (Death, Hospitalization)
  Sender: FDA-Public Use
  Company Number: US-PFIZER INC-2017397168

PATIENT
  Age: 51 Year
  Sex: Male
  Weight: 161.4 kg

DRUGS (7)
  1. UREA. [Concomitant]
     Active Substance: UREA
     Dosage: UNK
     Route: 061
  2. SUTENT [Suspect]
     Active Substance: SUNITINIB MALATE
     Dosage: 25 MG, DAILY
     Dates: start: 20171010
  3. POTASSIUM [Concomitant]
     Active Substance: POTASSIUM
     Dosage: UNK
  4. SUTENT [Suspect]
     Active Substance: SUNITINIB MALATE
     Dosage: 37.5 MG, UNK
     Dates: start: 201707
  5. SUTENT [Suspect]
     Active Substance: SUNITINIB MALATE
     Dosage: 25 MG, CYCLIC (DAILY FOR 28 DAYS ON AND 14 DAYS OFF)
  6. LASIX [Concomitant]
     Active Substance: FUROSEMIDE
     Dosage: UNK
  7. SUTENT [Suspect]
     Active Substance: SUNITINIB MALATE
     Indication: GASTROINTESTINAL STROMAL TUMOUR
     Dosage: 37.5 MG, CYCLIC (EVERY DAY FOUR WEEKS ON AND TWO WEEKS OFF)
     Dates: start: 20170524

REACTIONS (9)
  - Escherichia infection [Fatal]
  - Neutrophil count decreased [Recovered/Resolved]
  - Erythema [Unknown]
  - Abdominal pain [Unknown]
  - Drug dose omission [Unknown]
  - Blood creatine phosphokinase increased [Unknown]
  - Neoplasm progression [Unknown]
  - Blood disorder [Unknown]
  - Headache [Unknown]

NARRATIVE: CASE EVENT DATE: 2017
